FAERS Safety Report 23464464 (Version 2)
Quarter: 2024Q1

REPORT INFORMATION
  Report Type: Spontaneous
  Country: CA (occurrence: CA)
  Receive Date: 20240201
  Receipt Date: 20240328
  Transmission Date: 20240410
  Serious: Yes (Other)
  Sender: FDA-Public Use
  Company Number: CA-CELLTRION INC.-2023CA024843

PATIENT

DRUGS (7)
  1. INFLECTRA [Suspect]
     Active Substance: INFLIXIMAB-DYYB
     Indication: Crohn^s disease
     Dosage: 5 MG/KG,EVERY 8 WEEK
     Route: 042
     Dates: start: 20220222, end: 20220808
  2. INFLECTRA [Suspect]
     Active Substance: INFLIXIMAB-DYYB
     Dosage: 1 DF, 1 DOSE AFTER 6 WEEKS
     Route: 042
     Dates: start: 20220919, end: 20220919
  3. INFLECTRA [Suspect]
     Active Substance: INFLIXIMAB-DYYB
     Dosage: 7500 UG, 7.5 MG/KG Q 8 WEEKS
     Route: 042
     Dates: start: 20221116
  4. INFLECTRA [Suspect]
     Active Substance: INFLIXIMAB-DYYB
     Dosage: 7500 UG, 7.5 MG/KG Q 8 WEEKS
     Route: 042
     Dates: start: 20231018
  5. INFLECTRA [Suspect]
     Active Substance: INFLIXIMAB-DYYB
     Dosage: 7500 UG, 7.5 MG/KG Q 8 WEEKS
     Route: 042
     Dates: start: 20231213
  6. DEXILANT [Concomitant]
     Active Substance: DEXLANSOPRAZOLE
     Dosage: UNK (INCREASE)
  7. ZANTAC [Concomitant]
     Active Substance: RANITIDINE HYDROCHLORIDE
     Dosage: 150 MG, 2X/DAY

REACTIONS (10)
  - Depressed level of consciousness [Unknown]
  - Heart rate increased [Unknown]
  - Palpitations [Unknown]
  - Chest pain [Unknown]
  - Blood bilirubin increased [Unknown]
  - Lipase decreased [Unknown]
  - Chest discomfort [Unknown]
  - General physical health deterioration [Unknown]
  - Migraine [Unknown]
  - Off label use [Unknown]

NARRATIVE: CASE EVENT DATE: 20220919
